FAERS Safety Report 10233625 (Version 1)
Quarter: 2014Q2

REPORT INFORMATION
  Report Type: Spontaneous
  Country: US (occurrence: None)
  Receive Date: 20140611
  Receipt Date: 20140611
  Transmission Date: 20141212
  Serious: Yes (Other)
  Sender: FDA-Public Use
  Company Number: None

PATIENT
  Age: 88 Year
  Sex: Male

DRUGS (1)
  1. ZYTIGA 250?MG JANSSEN [Suspect]
     Indication: PROSTATE CANCER
     Route: 048
     Dates: start: 20140416, end: 20140530

REACTIONS (3)
  - Gait disturbance [None]
  - Dyspnoea [None]
  - Asthenia [None]
